FAERS Safety Report 5381359-8 (Version None)
Quarter: 2007Q3

REPORT INFORMATION
  Report Type: 
  Country: None (occurrence: None)
  Receive Date: 20070709
  Receipt Date: 20070702
  Transmission Date: 20080115
  Serious: Yes (Hospitalization)
  Sender: FDA-Public Use
  Company Number: FR-ELI_LILLY_AND_COMPANY-FR200707000110

PATIENT
  Age: 25 Year
  Sex: Male
  Weight: 83 kg

DRUGS (6)
  1. ZYPREXA [Suspect]
     Indication: BIPOLAR DISORDER
     Dosage: 20 MG, DAILY (1/D)
     Route: 048
     Dates: start: 20070220, end: 20070404
  2. NOZINAN [Concomitant]
     Dosage: 100 MG, DAILY (1/D)
     Route: 048
     Dates: start: 20070220, end: 20070321
  3. DEPAKOTE [Concomitant]
     Indication: BIPOLAR DISORDER
     Dosage: 2 G, DAILY (1/D)
     Route: 048
     Dates: start: 20070220, end: 20070404
  4. DEPAKOTE [Concomitant]
     Dosage: 500 MG, 3/D
     Route: 048
     Dates: start: 20070417
  5. THERALENE [Concomitant]
     Dosage: 50 MG, DAILY (1/D)
     Route: 048
     Dates: start: 20070323, end: 20070507
  6. RIVOTRIL [Concomitant]
     Dosage: 4 MG, DAILY (1/D)
     Route: 048
     Dates: start: 20070220

REACTIONS (2)
  - HEPATOCELLULAR DAMAGE [None]
  - RESTLESS LEGS SYNDROME [None]
